FAERS Safety Report 6478071-0 (Version None)
Quarter: 2009Q4

REPORT INFORMATION
  Report Type: 
  Country: None (occurrence: None)
  Receive Date: 20091207
  Receipt Date: 20091202
  Transmission Date: 20100525
  Serious: Yes (Hospitalization, Other)
  Sender: FDA-Public Use
  Company Number: US-MERCK-0907USA02923

PATIENT
  Age: 62 Year
  Sex: Female

DRUGS (1)
  1. FOSAMAX [Suspect]
     Indication: OSTEOPOROSIS
     Route: 048
     Dates: start: 20020101, end: 20040101

REACTIONS (10)
  - BLOOD CHOLESTEROL INCREASED [None]
  - DENTAL CARIES [None]
  - HERNIA [None]
  - IMPAIRED HEALING [None]
  - INTESTINAL OBSTRUCTION [None]
  - LIMB INJURY [None]
  - ORAL INFECTION [None]
  - OSTEONECROSIS [None]
  - OSTEORADIONECROSIS [None]
  - SLEEP APNOEA SYNDROME [None]
